FAERS Safety Report 22240827 (Version 3)
Quarter: 2023Q2

REPORT INFORMATION
  Report Type: Spontaneous
  Country: CN (occurrence: CN)
  Receive Date: 20230421
  Receipt Date: 20230428
  Transmission Date: 20230721
  Serious: Yes (Other)
  Sender: FDA-Public Use
  Company Number: CN-009507513-2304CHN007963

PATIENT
  Age: 28 Year
  Sex: Female

DRUGS (17)
  1. PREVYMIS [Suspect]
     Active Substance: LETERMOVIR
     Indication: Antiviral prophylaxis
     Dosage: 240 MILLIGRAM, QD
     Route: 048
     Dates: start: 20230403, end: 20230413
  2. CYCLOSPORINE [Concomitant]
     Active Substance: CYCLOSPORINE
  3. THROMBOPOIETIN [Concomitant]
     Active Substance: THROMBOPOIETIN
     Dosage: UNK
     Dates: start: 20230404
  4. ALLOPURINOL [Concomitant]
     Active Substance: ALLOPURINOL
     Dosage: UNK
     Dates: start: 20230404
  5. DIETARY SUPPLEMENT\UBIDECARENONE [Concomitant]
     Active Substance: DIETARY SUPPLEMENT\UBIDECARENONE
     Dosage: UNK
     Dates: start: 20230404
  6. BICARBONAT SOD [Concomitant]
     Dosage: UNK
     Dates: start: 20230404
  7. MOXIFLOXACIN HYDROCHLORIDE [Concomitant]
     Active Substance: MOXIFLOXACIN HYDROCHLORIDE
     Dosage: UNK
     Dates: start: 20230405
  8. CYCLOSPORINE [Concomitant]
     Active Substance: CYCLOSPORINE
     Dosage: UNK
     Dates: start: 20230405
  9. SODIUM CHLORIDE [Concomitant]
     Active Substance: SODIUM CHLORIDE
     Dosage: UNK
     Dates: start: 20230405
  10. CASPOFUNGIN ACETATE [Concomitant]
     Active Substance: CASPOFUNGIN ACETATE
     Dosage: UNK
     Dates: start: 20230405
  11. URSODEOXYCHOL ACID [Concomitant]
  12. MOSAPRIDE CITRATE [Concomitant]
     Active Substance: MOSAPRIDE CITRATE
  13. FOLIC ACID [Concomitant]
     Active Substance: FOLIC ACID
  14. POSACONAZOLE [Concomitant]
     Active Substance: POSACONAZOLE
  15. METHYLCOBALAMIN [Concomitant]
     Active Substance: METHYLCOBALAMIN
  16. ULINASTATIN [Concomitant]
     Active Substance: ULINASTATIN
  17. CEFOPERAZONE SODIUM\SULBACTAM SODIUM [Concomitant]
     Active Substance: CEFOPERAZONE SODIUM\SULBACTAM SODIUM

REACTIONS (1)
  - Dementia [Unknown]

NARRATIVE: CASE EVENT DATE: 20230410
